FAERS Safety Report 8375315 (Version 2)
Quarter: 2013Q1

REPORT INFORMATION
  Report Type: Report from Study
  Country: US (occurrence: US)
  Receive Date: 20120129
  Receipt Date: 20130129
  Transmission Date: 20140127
  Serious: No
  Sender: FDA-Public Use
  Company Number: US-ABBOTT-11P-163-0887839-00

PATIENT
  Age: 50 Year
  Sex: Female

DRUGS (6)
  1. HUMIRA 40 MG/0.8 ML PEN [Suspect]
     Indication: PSORIASIS
     Dates: start: 20111118
  2. HUMIRA 40 MG/0.8 ML PEN [Suspect]
     Indication: PSORIASIS
  3. NEXIUM [Concomitant]
     Indication: GASTROOESOPHAGEAL REFLUX DISEASE
     Dosage: DAILY
  4. XYZAL [Concomitant]
     Indication: HYPERSENSITIVITY
     Dosage: DAILY
  5. SYNTHROID [Concomitant]
     Indication: THYROID CYST
     Dosage: DAILY
  6. ESTRADIOL [Concomitant]
     Indication: HYSTERECTOMY
     Dosage: DAILY

REACTIONS (14)
  - Respiratory tract infection [Recovering/Resolving]
  - Fungal infection [Recovering/Resolving]
  - Erythema [Recovering/Resolving]
  - Pruritus [Recovering/Resolving]
  - Fall [Unknown]
  - Eyelid ptosis [Unknown]
  - VIIth nerve paralysis [Unknown]
  - Balance disorder [Unknown]
  - VIIth nerve paralysis [Unknown]
  - White blood cell count decreased [Unknown]
  - Laboratory test abnormal [Unknown]
  - Immune system disorder [Unknown]
  - Gait disturbance [Unknown]
  - Facial paresis [Unknown]
